FAERS Safety Report 19992996 (Version 2)
Quarter: 2021Q4

REPORT INFORMATION
  Report Type: Spontaneous
  Country: FR (occurrence: FR)
  Receive Date: 20211026
  Receipt Date: 20211118
  Transmission Date: 20220303
  Serious: Yes (Other)
  Sender: FDA-Public Use
  Company Number: FR-AFSSAPS-AN20213860

PATIENT
  Age: 73 Year
  Sex: Female
  Weight: 107 kg

DRUGS (4)
  1. TAMSULOSIN [Suspect]
     Active Substance: TAMSULOSIN
     Indication: Dysuria
     Dosage: 0.4 MILLIGRAM, DAILY
     Route: 048
     Dates: start: 20210826, end: 20210908
  2. VALPROATE SODIUM [Suspect]
     Active Substance: VALPROATE SODIUM
     Indication: Epilepsy
     Dosage: 2000 MILLIGRAM, DAILY
     Route: 048
     Dates: start: 20210901, end: 20210908
  3. VALPROATE SODIUM [Suspect]
     Active Substance: VALPROATE SODIUM
     Dosage: 1000 MILLIGRAM, DAILY
     Route: 048
     Dates: start: 20210908, end: 20210918
  4. VALPROATE SODIUM [Suspect]
     Active Substance: VALPROATE SODIUM
     Dosage: 1 MILLIGRAM/KILOGRAM, 1DOSE/HR
     Route: 042
     Dates: start: 20210823, end: 20210901

REACTIONS (1)
  - Bicytopenia [Recovered/Resolved]

NARRATIVE: CASE EVENT DATE: 20210829
